FAERS Safety Report 4911354-1 (Version None)
Quarter: 2006Q1

REPORT INFORMATION
  Report Type: 
  Country: None (occurrence: None)
  Receive Date: 20060113
  Receipt Date: 20051108
  Transmission Date: 20060701
  Serious: No
  Sender: FDA-Public Use
  Company Number: 2005SP003893

PATIENT
  Age: 50 Year
  Sex: Male
  Weight: 70.3075 kg

DRUGS (1)
  1. LUNESTA [Suspect]
     Dosage: 3 MG; HS; ORAL
     Route: 048
     Dates: start: 20051001

REACTIONS (1)
  - DYSGEUSIA [None]
